FAERS Safety Report 9423810 (Version 2)
Quarter: 2014Q1

REPORT INFORMATION
  Report Type: Spontaneous
  Country: GB (occurrence: GB)
  Receive Date: 20130729
  Receipt Date: 20140312
  Transmission Date: 20141002
  Serious: Yes (Other)
  Sender: FDA-Public Use
  Company Number: GB-ROCHE-1224861

PATIENT
  Sex: Female

DRUGS (5)
  1. HERCEPTIN [Suspect]
     Indication: PRODUCT USED FOR UNKNOWN INDICATION
     Route: 065
  2. HERCEPTIN [Suspect]
     Dosage: CYCLE 3
     Route: 065
     Dates: start: 20130422
  3. HERCEPTIN [Suspect]
     Dosage: CYCLE 4
     Route: 065
     Dates: start: 20130513
  4. HERCEPTIN [Suspect]
     Dosage: CYCLE 6
     Route: 065
  5. TAXOTERE [Concomitant]

REACTIONS (15)
  - Breast swelling [Unknown]
  - Dizziness [Unknown]
  - Headache [Unknown]
  - Neuropathy peripheral [Not Recovered/Not Resolved]
  - Fatigue [Unknown]
  - Insomnia [Unknown]
  - Fatigue [Unknown]
  - Rhinorrhoea [Unknown]
  - Nausea [Unknown]
  - Diarrhoea [Unknown]
  - Muscle spasms [Unknown]
  - Constipation [Unknown]
  - Joint stiffness [Unknown]
  - Hot flush [Unknown]
  - Sneezing [Unknown]
